FAERS Safety Report 21729402 (Version 2)
Quarter: 2022Q4

REPORT INFORMATION
  Report Type: Report from Study
  Country: US (occurrence: US)
  Receive Date: 20221214
  Receipt Date: 20221215
  Transmission Date: 20230113
  Serious: No
  Sender: FDA-Public Use
  Company Number: US-ABBVIE-4224416

PATIENT
  Sex: Male

DRUGS (1)
  1. HUMIRA [Suspect]
     Active Substance: ADALIMUMAB
     Indication: Psoriasis
     Route: 058

REACTIONS (11)
  - Hypersomnia [Not Recovered/Not Resolved]
  - Feeling abnormal [Not Recovered/Not Resolved]
  - Hypophagia [Not Recovered/Not Resolved]
  - Psoriasis [Not Recovered/Not Resolved]
  - Fatigue [Not Recovered/Not Resolved]
  - Vomiting [Not Recovered/Not Resolved]
  - Fungal infection [Not Recovered/Not Resolved]
  - Gastrointestinal disorder [Unknown]
  - Asthenia [Not Recovered/Not Resolved]
  - Illness [Unknown]
  - Nail disorder [Unknown]
